FAERS Safety Report 15886987 (Version 36)
Quarter: 2023Q1

REPORT INFORMATION
  Report Type: Spontaneous
  Country: CA (occurrence: CA)
  Receive Date: 20190130
  Receipt Date: 20230121
  Transmission Date: 20230418
  Serious: Yes (Hospitalization, Other)
  Sender: FDA-Public Use
  Company Number: CA-CELLTRION INC.-2019CA018248

PATIENT

DRUGS (46)
  1. INFLECTRA [Suspect]
     Active Substance: INFLIXIMAB-DYYB
     Indication: Crohn^s disease
     Dosage: 5 MG/KG, AT 0, 2, 6, THEN EVERY 8 WEEKS
     Route: 042
     Dates: start: 20180307, end: 20180518
  2. INFLECTRA [Suspect]
     Active Substance: INFLIXIMAB-DYYB
     Dosage: 5 MG/KG, WEEKLY INDUCTION WEEK 0 DOSE
     Route: 042
     Dates: start: 20180307, end: 20180307
  3. INFLECTRA [Suspect]
     Active Substance: INFLIXIMAB-DYYB
     Dosage: 5 MG/KG, WEEKLY INDUCTION WEEK 2 DOSE
     Route: 042
     Dates: start: 20180320, end: 20180320
  4. INFLECTRA [Suspect]
     Active Substance: INFLIXIMAB-DYYB
     Dosage: 5 MG/KG, WEEKLY INDUCTION WEEK 6 DOSE
     Route: 042
     Dates: start: 20180411, end: 20180411
  5. INFLECTRA [Suspect]
     Active Substance: INFLIXIMAB-DYYB
     Dosage: 5 MG/KG, EVERY 8 WEEKS
     Route: 042
     Dates: start: 20180605, end: 20180605
  6. INFLECTRA [Suspect]
     Active Substance: INFLIXIMAB-DYYB
     Dosage: 5 MG/KG (ROUNDED TO NEAREST VIAL), EVERY 6 WEEKS
     Route: 042
     Dates: start: 20180628
  7. INFLECTRA [Suspect]
     Active Substance: INFLIXIMAB-DYYB
     Dosage: 5 MG/KG (ROUNDED TO NEAREST VIAL), EVERY 6 WEEKS
     Route: 042
     Dates: start: 20181204
  8. INFLECTRA [Suspect]
     Active Substance: INFLIXIMAB-DYYB
     Dosage: 5 MG/KG (ROUNDED TO NEAREST VIAL), EVERY 6 WEEKS
     Route: 042
     Dates: start: 20190311
  9. INFLECTRA [Suspect]
     Active Substance: INFLIXIMAB-DYYB
     Dosage: 5 MG/KG (ROUNDED TO NEAREST VIAL), EVERY 6 WEEKS
     Route: 042
     Dates: start: 20190424
  10. INFLECTRA [Suspect]
     Active Substance: INFLIXIMAB-DYYB
     Dosage: 5 MG/KG (ROUNDED TO NEAREST VIAL), EVERY 6 WEEKS
     Route: 042
     Dates: start: 20190606
  11. INFLECTRA [Suspect]
     Active Substance: INFLIXIMAB-DYYB
     Dosage: 5 MG/KG (ROUNDED TO NEAREST VIAL), EVERY 8 WEEKS
     Route: 042
     Dates: start: 20190802
  12. INFLECTRA [Suspect]
     Active Substance: INFLIXIMAB-DYYB
     Dosage: 5 MG/KG (ROUNDED TO NEAREST VIAL), EVERY 8 WEEKS
     Route: 042
     Dates: start: 20190930
  13. INFLECTRA [Suspect]
     Active Substance: INFLIXIMAB-DYYB
     Dosage: 5 MG/KG (ROUNDED TO NEAREST VIAL), EVERY 8 WEEKS
     Route: 042
     Dates: start: 20191107
  14. INFLECTRA [Suspect]
     Active Substance: INFLIXIMAB-DYYB
     Dosage: 5 MG/KG (ROUNDED TO NEAREST VIAL), EVERY 8 WEEKS
     Route: 042
     Dates: start: 20200102
  15. INFLECTRA [Suspect]
     Active Substance: INFLIXIMAB-DYYB
     Dosage: 5 MG/KG (ROUNDED TO NEAREST VIAL), EVERY 8 WEEKS
     Route: 042
     Dates: start: 20200226
  16. INFLECTRA [Suspect]
     Active Substance: INFLIXIMAB-DYYB
     Dosage: 5 MG/KG (ROUNDED TO NEAREST VIAL), EVERY 8 WEEKS
     Route: 042
     Dates: start: 20200423
  17. INFLECTRA [Suspect]
     Active Substance: INFLIXIMAB-DYYB
     Dosage: 710 MG
     Route: 042
     Dates: start: 20200616
  18. INFLECTRA [Suspect]
     Active Substance: INFLIXIMAB-DYYB
     Dosage: 7.5 MG/KG (7500 MICROGRAM) EVERY 8 WEEKS
     Route: 042
     Dates: start: 20200806
  19. INFLECTRA [Suspect]
     Active Substance: INFLIXIMAB-DYYB
     Dosage: 7.5 MG/KG (7500 MICROGRAM) EVERY 8 WEEKS
     Route: 042
     Dates: start: 20201124
  20. INFLECTRA [Suspect]
     Active Substance: INFLIXIMAB-DYYB
     Dosage: 7.5 MG/KG (7500 MICROGRAM) EVERY 8 WEEKS
     Route: 042
     Dates: start: 20210119
  21. INFLECTRA [Suspect]
     Active Substance: INFLIXIMAB-DYYB
     Dosage: 7.5 MG/KG (7500 MICROGRAM) EVERY 8 WEEKS
     Route: 042
     Dates: start: 20210318
  22. INFLECTRA [Suspect]
     Active Substance: INFLIXIMAB-DYYB
     Dosage: 7.5 MG/KG (7500 MICROGRAM) EVERY 8 WEEKS
     Route: 042
     Dates: start: 20210512
  23. INFLECTRA [Suspect]
     Active Substance: INFLIXIMAB-DYYB
     Dosage: 7.5 MG/KG (7500 MICROGRAM) EVERY 8 WEEKS
     Route: 042
     Dates: start: 20210709
  24. INFLECTRA [Suspect]
     Active Substance: INFLIXIMAB-DYYB
     Dosage: 7.5 MG/KG (7500 MICROGRAM) EVERY 8 WEEKS
     Route: 042
     Dates: start: 20210901
  25. INFLECTRA [Suspect]
     Active Substance: INFLIXIMAB-DYYB
     Dosage: 7.5 MG/KG (7500 MICROGRAM) EVERY 8 WEEKS
     Route: 042
     Dates: start: 20211028
  26. INFLECTRA [Suspect]
     Active Substance: INFLIXIMAB-DYYB
     Dosage: 7.5 MG/KG  EVERY 8 WEEKS
     Route: 042
     Dates: start: 20220413
  27. INFLECTRA [Suspect]
     Active Substance: INFLIXIMAB-DYYB
     Dosage: 7.5 MG/KG  EVERY 8 WEEKS
     Route: 042
     Dates: start: 20220613
  28. INFLECTRA [Suspect]
     Active Substance: INFLIXIMAB-DYYB
     Dosage: 7.5 MG/KG EVERY 8 WEEKS
     Route: 042
     Dates: start: 20220613
  29. INFLECTRA [Suspect]
     Active Substance: INFLIXIMAB-DYYB
     Dosage: 7.5 MG/KG EVERY 8 WEEKS
     Route: 042
     Dates: start: 20220804
  30. INFLECTRA [Suspect]
     Active Substance: INFLIXIMAB-DYYB
     Dosage: 500 MG, (SUPPOSED TO RECEIVE 7.5 MG/KG), EVERY 6 WEEKS
     Route: 042
     Dates: start: 20221122
  31. INFLECTRA [Suspect]
     Active Substance: INFLIXIMAB-DYYB
     Dosage: 7.5 MG/KG, EVERY 6 WEEKS
     Route: 042
     Dates: start: 20230111
  32. METHYLPHENIDATE [Concomitant]
     Active Substance: METHYLPHENIDATE
     Indication: Attention deficit hyperactivity disorder
     Dosage: 20 MG, DAILY
     Route: 065
  33. METHYLPHENIDATE [Concomitant]
     Active Substance: METHYLPHENIDATE
     Dosage: 20 MG, 1X/DAY
     Route: 065
  34. CALCIUM [Concomitant]
     Active Substance: CALCIUM
     Dosage: 1 DF, DOSAGE NOT AVAILABLE
     Route: 065
  35. CIPROFLOXACIN\CIPROFLOXACIN HYDROCHLORIDE [Concomitant]
     Active Substance: CIPROFLOXACIN\CIPROFLOXACIN HYDROCHLORIDE
     Dosage: 1 DF, WEEKLY, UNKNOWN DOSE
     Route: 065
  36. METAMUCIL [Concomitant]
     Active Substance: PLANTAGO SEED
     Dosage: UNK, 1X/DAY AT NIGHT, HS (AT HOUR OF SLEEP)
  37. METAMUCIL [Concomitant]
     Active Substance: PLANTAGO SEED
     Dosage: 1 DF, DOSAGE NOT AVAILABLE - AT BEDTIME
     Route: 065
  38. PREDNISONE [Concomitant]
     Active Substance: PREDNISONE
     Dosage: 10 MG, UNK
     Route: 048
     Dates: start: 2018
  39. RITALIN [Concomitant]
     Active Substance: METHYLPHENIDATE HYDROCHLORIDE
     Dosage: 1 DF, 1X/DAY, DOSAGE INFORMATION NOT AVAILABLE
     Route: 065
  40. ACETAMINOPHEN\TRAMADOL [Concomitant]
     Active Substance: ACETAMINOPHEN\TRAMADOL
     Indication: Pain
     Dosage: 325 MG, AS NEEDED
     Route: 065
  41. TRINTELLIX [Concomitant]
     Active Substance: VORTIOXETINE HYDROBROMIDE
     Dosage: 10 MG, 1X/DAY
     Route: 065
  42. VALTREX [Concomitant]
     Active Substance: VALACYCLOVIR HYDROCHLORIDE
     Dosage: 500 MG, 1X/DAY
     Route: 065
  43. WELLBUTRIN [Concomitant]
     Active Substance: BUPROPION HYDROCHLORIDE
     Dosage: 150 MG, 1X/DAY
     Route: 065
  44. ZOPICLONE [Concomitant]
     Active Substance: ZOPICLONE
     Dosage: 3.75 MG, 1X/DAY AT NIGHT, HS (AT HOUR OF SLEEP) 3750 MICROGRAM AT BEDTIME
     Route: 065
  45. SENOKOT [Concomitant]
     Active Substance: SENNOSIDES
     Dosage: 1 DF
     Route: 048
  46. LAX A DAY PHARMA [Concomitant]

REACTIONS (58)
  - Uterine leiomyoma [Not Recovered/Not Resolved]
  - Dyspnoea [Recovered/Resolved]
  - Foot fracture [Not Recovered/Not Resolved]
  - Fracture displacement [Unknown]
  - Localised infection [Recovered/Resolved]
  - Osteoarthritis [Not Recovered/Not Resolved]
  - Throat tightness [Recovered/Resolved]
  - Tissue infiltration [Unknown]
  - Fibroma [Not Recovered/Not Resolved]
  - Off label use [Unknown]
  - Off label use [Unknown]
  - Intentional product use issue [Unknown]
  - Inappropriate schedule of product administration [Unknown]
  - Incorrect dose administered [Unknown]
  - Product dose omission issue [Unknown]
  - Pyrexia [Recovering/Resolving]
  - Bacterial vaginosis [Unknown]
  - Productive cough [Recovering/Resolving]
  - Nausea [Recovered/Resolved]
  - Panic reaction [Unknown]
  - Blood pressure increased [Unknown]
  - Heart rate increased [Recovered/Resolved]
  - Discomfort [Recovered/Resolved]
  - Abdominal pain upper [Recovered/Resolved]
  - Diarrhoea [Recovered/Resolved]
  - Palatal ulcer [Recovered/Resolved]
  - Mouth ulceration [Recovered/Resolved]
  - Intermittent claudication [Not Recovered/Not Resolved]
  - Urinary tract infection [Recovered/Resolved]
  - Arthralgia [Unknown]
  - Visual impairment [Unknown]
  - Aphthous ulcer [Unknown]
  - Oedema mucosal [Unknown]
  - Burning sensation [Unknown]
  - Secretion discharge [Unknown]
  - Inflammation [Unknown]
  - Movement disorder [Unknown]
  - Insomnia [Unknown]
  - Pain [Unknown]
  - Migraine [Recovered/Resolved]
  - Malaise [Recovered/Resolved]
  - Headache [Recovered/Resolved]
  - Synovial cyst [Recovered/Resolved]
  - Dyspepsia [Recovered/Resolved]
  - Constipation [Recovered/Resolved]
  - COVID-19 [Not Recovered/Not Resolved]
  - Cyst [Not Recovered/Not Resolved]
  - Weight decreased [Unknown]
  - Flatulence [Unknown]
  - Hypersensitivity [Recovered/Resolved]
  - Erythema [Recovered/Resolved]
  - Blister [Recovered/Resolved]
  - Constipation [Not Recovered/Not Resolved]
  - Eating disorder [Not Recovered/Not Resolved]
  - Vomiting [Not Recovered/Not Resolved]
  - Fistula [Unknown]
  - Influenza [Not Recovered/Not Resolved]
  - Nasopharyngitis [Recovering/Resolving]

NARRATIVE: CASE EVENT DATE: 20180101
